FAERS Safety Report 14768140 (Version 8)
Quarter: 2021Q2

REPORT INFORMATION
  Report Type: Spontaneous
  Country: US (occurrence: US)
  Receive Date: 20180417
  Receipt Date: 20210514
  Transmission Date: 20210716
  Serious: Yes (Congenital Anomaly, Other)
  Sender: FDA-Public Use
  Company Number: PHEH2018US013734

PATIENT
  Sex: Male

DRUGS (2)
  1. ZOFRAN [Suspect]
     Active Substance: ONDANSETRON HYDROCHLORIDE
     Indication: FOETAL EXPOSURE DURING PREGNANCY
     Dosage: MOTHER DOSE: 8 MG, Q8H
     Route: 064
  2. ZOFRAN [Suspect]
     Active Substance: ONDANSETRON HYDROCHLORIDE
     Indication: FOETAL EXPOSURE DURING PREGNANCY
     Dosage: MOTHER^S DOSE: 4 MG UNK
     Route: 064

REACTIONS (31)
  - Failure to thrive [Unknown]
  - Foetal exposure during pregnancy [Unknown]
  - Rhinorrhoea [Unknown]
  - Tonsillitis [Unknown]
  - Bronchitis [Unknown]
  - Nasal congestion [Unknown]
  - Congenital inguinal hernia [Unknown]
  - Congenital acrochordon [Unknown]
  - Rash [Unknown]
  - Bronchiolitis [Unknown]
  - Cardiac murmur [Unknown]
  - Upper respiratory tract infection [Unknown]
  - Otitis media [Unknown]
  - Polydactyly [Unknown]
  - Bacteraemia [Unknown]
  - Meningitis [Unknown]
  - Viral infection [Unknown]
  - Premature baby [Unknown]
  - Vomiting [Unknown]
  - Sinusitis [Unknown]
  - Nasopharyngitis [Unknown]
  - Hyperbilirubinaemia neonatal [Unknown]
  - Language disorder [Unknown]
  - Dehydration [Unknown]
  - Pneumonia [Unknown]
  - Encephalitis [Unknown]
  - Pyrexia [Unknown]
  - Diarrhoea [Unknown]
  - Teething [Unknown]
  - Ear infection [Unknown]
  - Rhinitis [Unknown]
